FAERS Safety Report 19184845 (Version 2)
Quarter: 2021Q2

REPORT INFORMATION
  Report Type: Spontaneous
  Country: SA (occurrence: SA)
  Receive Date: 20210427
  Receipt Date: 20210510
  Transmission Date: 20210717
  Serious: Yes (Hospitalization, Other)
  Sender: FDA-Public Use
  Company Number: SA-PFIZER INC-2021410310

PATIENT
  Age: 57 Year
  Sex: Female

DRUGS (4)
  1. XELJANZ [Suspect]
     Active Substance: TOFACITINIB CITRATE
     Indication: VAGINAL HAEMORRHAGE
     Dosage: 11 MG
  2. XELJANZ [Suspect]
     Active Substance: TOFACITINIB CITRATE
     Indication: RHEUMATOID ARTHRITIS
  3. PROGESTERONE. [Suspect]
     Active Substance: PROGESTERONE
     Indication: VAGINAL HAEMORRHAGE
  4. PROGESTERONE. [Suspect]
     Active Substance: PROGESTERONE
     Indication: RHEUMATOID ARTHRITIS
     Dosage: UNK

REACTIONS (2)
  - Cardiac ventricular thrombosis [Recovered/Resolved]
  - Myocardial infarction [Recovered/Resolved]
